FAERS Safety Report 7467392-0 (Version None)
Quarter: 2011Q2

REPORT INFORMATION
  Report Type: 
  Country: None (occurrence: None)
  Receive Date: 20110509
  Receipt Date: 20101216
  Transmission Date: 20111010
  Serious: No
  Sender: FDA-Public Use
  Company Number: US-ALEXION-A201001621

PATIENT
  Sex: Male

DRUGS (3)
  1. SOLIRIS [Suspect]
     Dosage: 900 MG, Q2W
     Route: 042
     Dates: start: 20100101
  2. VIDAZA [Suspect]
     Indication: MYELODYSPLASTIC SYNDROME
     Dosage: UNK
  3. SOLIRIS [Suspect]
     Indication: PAROXYSMAL NOCTURNAL HAEMOGLOBINURIA
     Dosage: 600 MG, QWX4
     Route: 042
     Dates: start: 20100113, end: 20100101

REACTIONS (3)
  - HAEMOGLOBIN DECREASED [None]
  - HAEMATOCRIT DECREASED [None]
  - PLATELET COUNT DECREASED [None]
